FAERS Safety Report 8558836-1 (Version None)
Quarter: 2012Q3

REPORT INFORMATION
  Report Type: 
  Country: None (occurrence: None)
  Receive Date: 20120801
  Receipt Date: 20120720
  Transmission Date: 20120928
  Serious: Yes (Disabling, Other)
  Sender: FDA-Public Use
  Company Number: US-009507513-1205USA02860

PATIENT

DRUGS (3)
  1. FOSAMAX [Suspect]
     Indication: PROPHYLAXIS
     Dosage: UNK
     Route: 048
     Dates: start: 20000130
  2. FOSAMAX [Suspect]
     Dosage: 10 MG, UNK
     Route: 048
     Dates: end: 20000929
  3. FOSAMAX [Suspect]
     Dosage: 40 MG, M-F
     Route: 048
     Dates: start: 20001006

REACTIONS (25)
  - BONE DENSITY DECREASED [None]
  - FRACTURE [None]
  - OSTEOPENIA [None]
  - CALCIUM DEFICIENCY [None]
  - JOINT DISLOCATION [None]
  - INAPPROPRIATE SCHEDULE OF DRUG ADMINISTRATION [None]
  - VERTIGO [None]
  - ANKLE FRACTURE [None]
  - TOOTH DISORDER [None]
  - OSTEOPOROSIS [None]
  - IMPAIRED HEALING [None]
  - RIB FRACTURE [None]
  - SPINAL OSTEOARTHRITIS [None]
  - BACK PAIN [None]
  - GASTRITIS [None]
  - PAIN IN EXTREMITY [None]
  - FEELING ABNORMAL [None]
  - WITHDRAWAL SYNDROME [None]
  - SINUSITIS [None]
  - BURSITIS [None]
  - BONE PAIN [None]
  - FEMUR FRACTURE [None]
  - STRESS FRACTURE [None]
  - BRONCHITIS [None]
  - DEPRESSION [None]
